FAERS Safety Report 9663069 (Version 1)
Quarter: 2013Q4

REPORT INFORMATION
  Report Type: Spontaneous
  Country: US (occurrence: US)
  Receive Date: 20131031
  Receipt Date: 20131031
  Transmission Date: 20140711
  Serious: No
  Sender: FDA-Public Use
  Company Number: US-009507513-1310USA011595

PATIENT
  Age: 78 Year
  Sex: Male

DRUGS (4)
  1. SINEMET [Suspect]
     Route: 048
  2. REQUIP [Suspect]
  3. ARTANE [Suspect]
  4. AMANTADINE HYDROCHLORIDE [Suspect]

REACTIONS (1)
  - Adverse drug reaction [Recovered/Resolved]
